FAERS Safety Report 5521781-X (Version None)
Quarter: 2007Q4

REPORT INFORMATION
  Report Type: 
  Country: None (occurrence: None)
  Receive Date: 20071120
  Receipt Date: 20071113
  Transmission Date: 20080405
  Serious: Yes (Hospitalization)
  Sender: FDA-Public Use
  Company Number: CZ-AVENTIS-200720509GDDC

PATIENT
  Age: 73 Year
  Sex: Male

DRUGS (5)
  1. ARAVA [Suspect]
     Indication: RHEUMATOID ARTHRITIS
     Route: 048
     Dates: start: 20070123, end: 20070905
  2. METHOTREXATE [Concomitant]
     Indication: RHEUMATOID ARTHRITIS
     Dosage: DOSE: UNK
     Dates: start: 20070123, end: 20070905
  3. FOSAMAX [Concomitant]
     Indication: OSTEOPOROSIS
     Dosage: DOSE: UNK
  4. FOLIC ACID [Concomitant]
     Dosage: DOSE: UNK
  5. CALCICHEW D3 [Concomitant]
     Dosage: DOSE: UNK

REACTIONS (4)
  - ASTHENIA [None]
  - FATIGUE [None]
  - MYELODYSPLASTIC SYNDROME [None]
  - PALLOR [None]
